FAERS Safety Report 10387693 (Version 3)
Quarter: 2015Q1

REPORT INFORMATION
  Report Type: Spontaneous
  Country: US (occurrence: US)
  Receive Date: 20140815
  Receipt Date: 20150309
  Transmission Date: 20150720
  Serious: Yes (Death, Hospitalization, Other)
  Sender: FDA-Public Use
  Company Number: US-INCYTE CORPORATION-2014IN002335

PATIENT
  Age: 88 Year
  Sex: Male
  Weight: 85.7 kg

DRUGS (10)
  1. LIPITOR [Concomitant]
     Active Substance: ATORVASTATIN CALCIUM
  2. LASIX [Concomitant]
     Active Substance: FUROSEMIDE
  3. TERAZOSIN [Concomitant]
     Active Substance: TERAZOSIN\TERAZOSIN HYDROCHLORIDE
  4. FERROUS SULFATE [Concomitant]
     Active Substance: FERROUS SULFATE\FERROUS SULFATE, DRIED
  5. PREDNISONE. [Concomitant]
     Active Substance: PREDNISONE
     Dosage: 5 MG, UNK
  6. POTASSIUM CHLORIDE. [Concomitant]
     Active Substance: POTASSIUM CHLORIDE
  7. ASPIRIN. [Concomitant]
     Active Substance: ASPIRIN
  8. JAKAFI [Suspect]
     Active Substance: RUXOLITINIB
     Indication: MYELOFIBROSIS
     Dosage: 5 MG, BID
     Route: 048
     Dates: start: 20130601, end: 20140811
  9. ARANESP [Concomitant]
     Active Substance: DARBEPOETIN ALFA
  10. MULTIVITAMIN                       /00097801/ [Concomitant]
     Active Substance: VITAMINS

REACTIONS (8)
  - Anaemia [Not Recovered/Not Resolved]
  - Myopathy [Recovering/Resolving]
  - Thrombocytopenia [Not Recovered/Not Resolved]
  - Guillain-Barre syndrome [Recovering/Resolving]
  - Death [Fatal]
  - Hyponatraemia [Recovering/Resolving]
  - Progressive multifocal leukoencephalopathy [Recovering/Resolving]
  - Back pain [Recovering/Resolving]

NARRATIVE: CASE EVENT DATE: 20140731
